FAERS Safety Report 6369836-4 (Version None)
Quarter: 2009Q3

REPORT INFORMATION
  Report Type: 
  Country: None (occurrence: None)
  Receive Date: 20090923
  Receipt Date: 20070511
  Transmission Date: 20100115
  Serious: Yes (Other)
  Sender: FDA-Public Use
  Company Number: US-ASTRAZENECA-2006UW11759

PATIENT
  Sex: Female
  Weight: 82.6 kg

DRUGS (9)
  1. SEROQUEL [Suspect]
     Indication: ANXIETY
     Route: 048
     Dates: start: 20040719
  2. SEROQUEL [Suspect]
     Indication: DEPRESSION
     Route: 048
     Dates: start: 20040719
  3. SEROQUEL [Suspect]
     Indication: BIPOLAR DISORDER
     Route: 048
     Dates: start: 20040719
  4. SEROQUEL [Suspect]
     Route: 048
     Dates: start: 20040101, end: 20060101
  5. SEROQUEL [Suspect]
     Route: 048
     Dates: start: 20040101, end: 20060101
  6. SEROQUEL [Suspect]
     Route: 048
     Dates: start: 20040101, end: 20060101
  7. HALDOL [Concomitant]
  8. ASPIRIN [Concomitant]
     Dates: start: 20031013
  9. PRILOSEC [Concomitant]
     Dates: start: 20031013

REACTIONS (2)
  - DIABETES MELLITUS [None]
  - PANCREATITIS [None]
